FAERS Safety Report 5962649-4 (Version None)
Quarter: 2008Q4

REPORT INFORMATION
  Report Type: 
  Country: None (occurrence: None)
  Receive Date: 20081121
  Receipt Date: 20081119
  Transmission Date: 20090506
  Serious: Yes (Death, Hospitalization, Other)
  Sender: FDA-Public Use
  Company Number: PHBS2008TW06401

PATIENT
  Age: 60 Year
  Sex: Male

DRUGS (9)
  1. CYCLOSPORINE [Suspect]
     Indication: HEART TRANSPLANT
     Route: 048
  2. ANTITHYMOCYTE IMMUNOGLOBULIN (RABBIT) [Concomitant]
     Dosage: 1.5 - 2.5 MG/KG/DAY
  3. AZATHIOPRINE [Concomitant]
     Dosage: 4 MG/KG
  4. AZATHIOPRINE [Concomitant]
     Dosage: 1 - 2 MG/KG/DAY
  5. SOLU-MEDROL [Concomitant]
     Dosage: 1 G
  6. PREDNISONE TAB [Concomitant]
     Dosage: 0.5 MG/KG/DAY
  7. CEFAZOLIN [Concomitant]
     Dosage: 1 G
     Route: 042
  8. MYCOSTATIN [Concomitant]
     Dosage: UNK
     Route: 048
  9. ACYCLOVIR [Concomitant]
     Dosage: 200 MG, Q6H

REACTIONS (4)
  - ACINETOBACTER INFECTION [None]
  - EXTRACORPOREAL MEMBRANE OXYGENATION [None]
  - SEPTIC SHOCK [None]
  - SHOCK [None]
